FAERS Safety Report 17137681 (Version 3)
Quarter: 2020Q1

REPORT INFORMATION
  Report Type: Spontaneous
  Country: US (occurrence: US)
  Receive Date: 20191211
  Receipt Date: 20200128
  Transmission Date: 20200409
  Serious: Yes (Other)
  Sender: FDA-Public Use
  Company Number: US-SUN PHARMACEUTICAL INDUSTRIES LTD-2019R1-226207

PATIENT
  Sex: Female

DRUGS (6)
  1. UPTRAVI [Concomitant]
     Active Substance: SELEXIPAG
     Indication: PRODUCT USED FOR UNKNOWN INDICATION
     Dosage: 400 MCG, BID
     Route: 065
     Dates: start: 20191015
  2. UPTRAVI [Concomitant]
     Active Substance: SELEXIPAG
     Dosage: DECREASE TO 1400MCG
     Route: 065
  3. AMBRISENTAN [Suspect]
     Active Substance: AMBRISENTAN
     Indication: PRODUCT USED FOR UNKNOWN INDICATION
     Dosage: 5 MILLIGRAM, DAILY
     Route: 048
     Dates: start: 20191016
  4. AMBRISENTAN [Suspect]
     Active Substance: AMBRISENTAN
     Dosage: 5 MILLIGRAM, DAILY
     Route: 048
     Dates: start: 20191016
  5. AMBRISENTAN [Suspect]
     Active Substance: AMBRISENTAN
     Indication: PRODUCT USED FOR UNKNOWN INDICATION
     Dosage: 10 MILLIGRAM, QD
     Route: 048
     Dates: start: 20191016
  6. DILITIAZEM [Concomitant]
     Active Substance: DILTIAZEM
     Indication: PRODUCT USED FOR UNKNOWN INDICATION
     Route: 065

REACTIONS (24)
  - Head discomfort [Unknown]
  - Malaise [Unknown]
  - Balance disorder [Unknown]
  - Oedema peripheral [Unknown]
  - Pain [Unknown]
  - Chills [Unknown]
  - Feeling hot [Unknown]
  - Nausea [Unknown]
  - Deafness [Unknown]
  - Hypersensitivity [Unknown]
  - Myalgia [Unknown]
  - Insomnia [Unknown]
  - Fluid retention [Unknown]
  - Condition aggravated [Unknown]
  - Pruritus [Unknown]
  - Ear congestion [Unknown]
  - Dizziness [Unknown]
  - Influenza like illness [Unknown]
  - Hypoacusis [Unknown]
  - Nasal congestion [Unknown]
  - Headache [Recovering/Resolving]
  - Diarrhoea [Unknown]
  - Sinus disorder [Unknown]
  - Weight increased [Unknown]

NARRATIVE: CASE EVENT DATE: 2019
